FAERS Safety Report 9207358 (Version 2)
Quarter: 2013Q4

REPORT INFORMATION
  Report Type: Spontaneous
  Country: US (occurrence: US)
  Receive Date: 20130403
  Receipt Date: 20131217
  Transmission Date: 20140711
  Serious: Yes (Other)
  Sender: FDA-Public Use
  Company Number: US-BAYER-2013-040136

PATIENT
  Age: 25 Year
  Sex: Female

DRUGS (4)
  1. YAZ [Suspect]
     Dosage: UNK
     Dates: start: 20070919, end: 201003
  2. YASMIN [Suspect]
     Dosage: UNK
     Dates: start: 20070919, end: 201003
  3. ACETAMINOPHEN W/PROPOXYPHENE [Concomitant]
     Dosage: 100-650
     Route: 048
     Dates: start: 20080815
  4. CEPHALEXIN [Concomitant]
     Dosage: 500 MG, UNK
     Route: 048
     Dates: start: 20080815

REACTIONS (7)
  - Cholelithiasis [None]
  - Cholecystitis [None]
  - Injury [None]
  - Pain [None]
  - Emotional distress [None]
  - Anxiety [None]
  - Psychological trauma [None]
